FAERS Safety Report 12582072 (Version 1)
Quarter: 2016Q3

REPORT INFORMATION
  Report Type: Spontaneous
  Country: GB (occurrence: GB)
  Receive Date: 20160722
  Receipt Date: 20160722
  Transmission Date: 20161109
  Serious: Yes (Hospitalization)
  Sender: FDA-Public Use
  Company Number: GB-ACCORD-042536

PATIENT
  Age: 27 Year
  Sex: Male

DRUGS (3)
  1. COCODAMOL [Concomitant]
     Active Substance: ACETAMINOPHEN\CODEINE PHOSPHATE
     Indication: GOUT
     Dosage: 30/500
     Dates: start: 20160613, end: 20160625
  2. ALLOPURINOL. [Suspect]
     Active Substance: ALLOPURINOL
     Indication: PROPHYLAXIS
     Route: 048
     Dates: start: 20160628, end: 20160628
  3. DICLOFENAC [Concomitant]
     Active Substance: DICLOFENAC
     Indication: GOUT
     Route: 048
     Dates: start: 20160613, end: 20160625

REACTIONS (1)
  - Seizure [Recovered/Resolved]

NARRATIVE: CASE EVENT DATE: 20160629
